FAERS Safety Report 23264253 (Version 1)
Quarter: 2023Q4

REPORT INFORMATION
  Report Type: Spontaneous
  Country: CN (occurrence: CN)
  Receive Date: 20231205
  Receipt Date: 20231205
  Transmission Date: 20240110
  Serious: Yes (Other)
  Sender: FDA-Public Use
  Company Number: CN-WOODWARD-2023-CN-000650

PATIENT
  Age: 51 Year
  Sex: Female

DRUGS (4)
  1. RABEPRAZOLE SODIUM [Suspect]
     Active Substance: RABEPRAZOLE SODIUM
     Indication: Helicobacter infection
     Dosage: 1 IN 12 HOUR
     Route: 048
     Dates: start: 20230905, end: 20230916
  2. BISMUTH [Suspect]
     Active Substance: BISMUTH
     Dosage: 1 IN 8 HOUR
     Route: 048
     Dates: start: 20230905, end: 20230916
  3. AMOXICILLIN [Suspect]
     Active Substance: AMOXICILLIN
     Dosage: 1 IN 12 HOUR
     Route: 048
     Dates: start: 20230905, end: 20230916
  4. FURAZOLIDONE [Suspect]
     Active Substance: FURAZOLIDONE
     Dosage: 1 IN 12 HOUR
     Route: 048
     Dates: start: 20230905, end: 20230916

REACTIONS (1)
  - Dermatitis allergic [Unknown]

NARRATIVE: CASE EVENT DATE: 20230916
